FAERS Safety Report 5302699-4 (Version None)
Quarter: 2007Q2

REPORT INFORMATION
  Report Type: 
  Country: None (occurrence: None)
  Receive Date: 20070419
  Receipt Date: 20070409
  Transmission Date: 20071010
  Serious: Yes (Other)
  Sender: FDA-Public Use
  Company Number: US-PFIZER INC-2007022716

PATIENT
  Sex: Male

DRUGS (12)
  1. EXUBERA [Suspect]
     Indication: DIABETES MELLITUS NON-INSULIN-DEPENDENT
  2. HUMULIN N [Concomitant]
  3. ENALAPRIL [Concomitant]
  4. DOXAZOSIN MESYLATE [Concomitant]
  5. LUNESTA [Concomitant]
  6. TORSEMIDE [Concomitant]
  7. DILTIAZEM [Concomitant]
  8. ASPIRIN [Concomitant]
  9. VITAMINS [Concomitant]
  10. LONOX [Concomitant]
  11. AVODART [Concomitant]
  12. LIPITOR [Concomitant]

REACTIONS (4)
  - ANXIETY [None]
  - BLINDNESS [None]
  - BLOOD GLUCOSE INCREASED [None]
  - HYPOGLYCAEMIA [None]
